FAERS Safety Report 15311249 (Version 1)
Quarter: 2018Q3

REPORT INFORMATION
  Report Type: Spontaneous
  Country: US (occurrence: US)
  Receive Date: 20180814
  Receipt Date: 20180814
  Transmission Date: 20181010
  Serious: Yes (Life-Threatening)
  Sender: FDA-Public Use
  Company Number: None

PATIENT
  Age: 35 Year
  Sex: Female
  Weight: 54 kg

DRUGS (4)
  1. CEPHALEXIN 500 MG [Suspect]
     Active Substance: CEPHALEXIN
     Indication: PROPHYLAXIS
     Dosage: ?          QUANTITY:6 DF DOSAGE FORM;?
     Route: 048
     Dates: start: 20180813, end: 20180814
  2. SYNTHROID [Concomitant]
     Active Substance: LEVOTHYROXINE SODIUM
  3. PRENATAL VITAMINS [Concomitant]
     Active Substance: VITAMINS
  4. SERTRALINE [Concomitant]
     Active Substance: SERTRALINE HYDROCHLORIDE

REACTIONS (6)
  - Faeces discoloured [None]
  - Diarrhoea [None]
  - Pyrexia [None]
  - Myalgia [None]
  - Insomnia [None]
  - Bone pain [None]

NARRATIVE: CASE EVENT DATE: 20180813
